FAERS Safety Report 22598262 (Version 1)
Quarter: 2023Q2

REPORT INFORMATION
  Report Type: Spontaneous
  Country: FR (occurrence: FR)
  Receive Date: 20230614
  Receipt Date: 20230614
  Transmission Date: 20230721
  Serious: Yes (Other)
  Sender: FDA-Public Use
  Company Number: FR-AMGEN-FRASP2023101830

PATIENT
  Age: 72 Year
  Sex: Male
  Weight: 71 kg

DRUGS (3)
  1. VECTIBIX [Suspect]
     Active Substance: PANITUMUMAB
     Indication: Adenocarcinoma of colon
     Dosage: 4.8 MILLIGRAM/KILOGRAM, Q2WK
     Route: 040
     Dates: start: 20230309, end: 20230323
  2. FERINJECT [Suspect]
     Active Substance: FERRIC CARBOXYMALTOSE
     Indication: Iron deficiency anaemia
     Dosage: 1 GRAM, SINGLE DOSE
     Route: 042
     Dates: start: 20230309, end: 20230309
  3. ACLASTA [Suspect]
     Active Substance: ZOLEDRONIC ACID
     Indication: Metastases to bone
     Dosage: 5 MG/YEAR
     Route: 040
     Dates: start: 202303, end: 202303

REACTIONS (2)
  - Hypophosphataemia [Recovered/Resolved with Sequelae]
  - Hypocalcaemia [Recovered/Resolved with Sequelae]

NARRATIVE: CASE EVENT DATE: 20230322
